FAERS Safety Report 21647871 (Version 7)
Quarter: 2023Q1

REPORT INFORMATION
  Report Type: Spontaneous
  Country: CA (occurrence: CA)
  Receive Date: 20221128
  Receipt Date: 20230331
  Transmission Date: 20230418
  Serious: Yes (Other)
  Sender: FDA-Public Use
  Company Number: CA-CELLTRION INC.-2022CA019832

PATIENT

DRUGS (11)
  1. INFLECTRA [Suspect]
     Active Substance: INFLIXIMAB-DYYB
     Indication: Colitis ulcerative
     Dosage: 425 MG,Q 0, 2, 6, THEN EVERY 8 WEEKS
     Route: 042
     Dates: start: 20220811, end: 20221117
  2. INFLECTRA [Suspect]
     Active Substance: INFLIXIMAB-DYYB
     Dosage: 425 MG,Q 0, 2, 6, THEN EVERY 8 WEEKS
     Route: 042
     Dates: start: 20220922
  3. INFLECTRA [Suspect]
     Active Substance: INFLIXIMAB-DYYB
     Dosage: 425 MG,Q 0, 2, 6, THEN EVERY 8 WEEKS
     Route: 042
     Dates: start: 20221117
  4. INFLECTRA [Suspect]
     Active Substance: INFLIXIMAB-DYYB
     Dosage: 10 MG/KG, EVERY 4 WEEK
     Route: 042
     Dates: start: 20221229
  5. INFLECTRA [Suspect]
     Active Substance: INFLIXIMAB-DYYB
     Dosage: 750 MG, (10MG/KG) EVERY 3 WEEKS AND 5 DAYS
     Route: 042
     Dates: start: 20230124
  6. INFLECTRA [Suspect]
     Active Substance: INFLIXIMAB-DYYB
     Dosage: 750 MG (10MG/KG) EVERY 4 WEEKS
     Route: 042
     Dates: start: 20230222
  7. INFLECTRA [Suspect]
     Active Substance: INFLIXIMAB-DYYB
     Dosage: 750 MG (10MG/KG) EVERY 4 WEEKS
     Route: 042
     Dates: start: 20230222
  8. INFLECTRA [Suspect]
     Active Substance: INFLIXIMAB-DYYB
     Dosage: 720 MG (10MG/KG) EVERY 4 WEEKS
     Route: 042
     Dates: start: 20230323
  9. MESALAMINE [Concomitant]
     Active Substance: MESALAMINE
     Dosage: 1 DF
  10. MESALAMINE [Concomitant]
     Active Substance: MESALAMINE
     Dosage: 1 DF
  11. PREDNISONE [Concomitant]
     Active Substance: PREDNISONE
     Dosage: 1 DF

REACTIONS (8)
  - Condition aggravated [Not Recovered/Not Resolved]
  - Therapeutic response shortened [Unknown]
  - Off label use [Unknown]
  - Inappropriate schedule of product administration [Unknown]
  - Inflammation [Not Recovered/Not Resolved]
  - Faecal calprotectin increased [Not Recovered/Not Resolved]
  - Drug level below therapeutic [Not Recovered/Not Resolved]
  - Weight decreased [Unknown]

NARRATIVE: CASE EVENT DATE: 20221117
